FAERS Safety Report 6986693-3 (Version None)
Quarter: 2010Q3

REPORT INFORMATION
  Report Type: 
  Country: None (occurrence: None)
  Receive Date: 20100915
  Receipt Date: 20090727
  Transmission Date: 20110219
  Serious: No
  Sender: FDA-Public Use
  Company Number: US-WYE-H10341209

PATIENT
  Sex: Female

DRUGS (11)
  1. PRISTIQ [Suspect]
     Indication: DEPRESSION
     Route: 048
     Dates: start: 20090601
  2. DIAZEPAM [Concomitant]
  3. LYRICA [Concomitant]
  4. METFORMIN [Concomitant]
  5. TRAMADOL [Concomitant]
  6. FUROSEMIDE [Concomitant]
  7. LISINOPRIL [Concomitant]
  8. VALSARTAN [Concomitant]
  9. DILTIAZEM [Concomitant]
  10. BACLOFEN [Concomitant]
  11. INSULIN [Concomitant]

REACTIONS (2)
  - DRUG INEFFECTIVE [None]
  - MEDICATION RESIDUE [None]
